FAERS Safety Report 6993086 (Version 3)
Quarter: 2013Q1

REPORT INFORMATION
  Report Type: Spontaneous
  Country: CA (occurrence: CA)
  Receive Date: 20090513
  Receipt Date: 20130312
  Transmission Date: 20140127
  Serious: Yes (Other)
  Sender: FDA-Public Use
  Company Number: CA-PFIZER INC-2009202025

PATIENT
  Age: 30 Year
  Sex: Female

DRUGS (1)
  1. CHAMPIX [Suspect]

REACTIONS (1)
  - Homicidal ideation [Recovered/Resolved]
